FAERS Safety Report 6209625-4 (Version None)
Quarter: 2009Q2

REPORT INFORMATION
  Report Type: 
  Country: None (occurrence: None)
  Receive Date: 20090601
  Receipt Date: 20071205
  Transmission Date: 20091009
  Serious: Yes (Other)
  Sender: FDA-Public Use
  Company Number: US-ASTRAZENECA-2007UW15993

PATIENT
  Age: 56 Year
  Sex: Female
  Weight: 99.8 kg

DRUGS (9)
  1. SEROQUEL [Suspect]
     Indication: SLEEP DISORDER
     Dosage: 200 MG - 300 MG
     Route: 048
     Dates: start: 20020218, end: 20060301
  2. SEROQUEL [Suspect]
     Route: 048
     Dates: start: 20020218
  3. MELLARIL [Concomitant]
     Dates: start: 20000621
  4. KLONOPIN [Concomitant]
     Route: 048
     Dates: start: 20040816
  5. MOTRIN [Concomitant]
     Dosage: 800 MG PM
     Route: 048
     Dates: start: 20010611
  6. DESYREL [Concomitant]
     Dosage: 50 MG AM, HS
     Route: 048
  7. VISTARIL [Concomitant]
     Dosage: HS
     Dates: start: 20010613
  8. ZOLOFT [Concomitant]
     Dates: start: 19970711
  9. AMBIEN [Concomitant]
     Dosage: 5 MG HS, PM
     Dates: start: 19970711

REACTIONS (2)
  - DIABETIC NEUROPATHY [None]
  - TYPE 2 DIABETES MELLITUS [None]
